FAERS Safety Report 4345044-3 (Version None)
Quarter: 2004Q2

REPORT INFORMATION
  Report Type: 
  Country: None (occurrence: None)
  Receive Date: 20040420
  Receipt Date: 20040412
  Transmission Date: 20050107
  Serious: Yes (Hospitalization)
  Sender: FDA-Public Use
  Company Number: K200400538

PATIENT
  Age: 84 Year
  Sex: Female

DRUGS (4)
  1. ALTACE [Suspect]
     Indication: CARDIAC FAILURE CONGESTIVE
     Dosage: 10 MG, QD, ORAL
     Route: 048
  2. FUROSEMIDE [Suspect]
     Indication: CARDIAC FAILURE CONGESTIVE
     Dosage: 8 MG, QD, ORAL
     Route: 048
  3. CELECOXIB (CELECOXIB)200MCG [Suspect]
     Indication: ARTHRITIS
     Dosage: 200 MG, QD, ORAL
     Route: 048
  4. CITALOPRAM [Concomitant]

REACTIONS (1)
  - LEFT VENTRICULAR FAILURE [None]
